FAERS Safety Report 9798440 (Version 2)
Quarter: 2014Q1

REPORT INFORMATION
  Report Type: Spontaneous
  Country: US (occurrence: US)
  Receive Date: 20140106
  Receipt Date: 20140131
  Transmission Date: 20141002
  Serious: Yes (Hospitalization, Other)
  Sender: FDA-Public Use
  Company Number: US-PFIZER INC-2014002486

PATIENT
  Age: 34 Year
  Sex: Male
  Weight: 99.77 kg

DRUGS (2)
  1. DILANTIN [Suspect]
     Indication: CONVULSION
     Dosage: 400 MG (TAKING FOUR CAPSULES OF 100MG TOGETHER), 1X/DAY
     Route: 048
     Dates: start: 201209
  2. LAMICTAL [Concomitant]
     Indication: CONVULSION
     Dosage: UNK

REACTIONS (3)
  - Astrocytoma [Unknown]
  - Brain neoplasm [Unknown]
  - Neoplasm recurrence [Unknown]
